FAERS Safety Report 14350929 (Version 1)
Quarter: 2018Q1

REPORT INFORMATION
  Report Type: Report from Study
  Country: US (occurrence: US)
  Receive Date: 20180104
  Receipt Date: 20180104
  Transmission Date: 20180509
  Serious: Yes (Other)
  Sender: FDA-Public Use
  Company Number: US-UCBSA-2017043107

PATIENT
  Sex: Female

DRUGS (7)
  1. LACOSAMIDE. [Suspect]
     Active Substance: LACOSAMIDE
     Indication: POST-TRAUMATIC EPILEPSY
     Dosage: 100 MG, 2X/DAY (BID)
  2. NAPROXEN. [Concomitant]
     Active Substance: NAPROXEN
     Indication: PAIN
  3. TRAMADOL. [Concomitant]
     Active Substance: TRAMADOL
     Indication: PAIN
  4. FIORICET [Concomitant]
     Active Substance: ACETAMINOPHEN\BUTALBITAL\CAFFEINE
     Indication: PAIN
  5. LACOSAMIDE. [Suspect]
     Active Substance: LACOSAMIDE
     Indication: OFF LABEL USE
  6. CYMBALTA [Concomitant]
     Active Substance: DULOXETINE HYDROCHLORIDE
     Indication: PRODUCT USED FOR UNKNOWN INDICATION
  7. TIZANIDINE. [Concomitant]
     Active Substance: TIZANIDINE
     Indication: PAIN

REACTIONS (7)
  - Adjustment disorder [Unknown]
  - Depressed mood [Unknown]
  - Anxiety [Unknown]
  - Seizure [Unknown]
  - Spinal osteoarthritis [Unknown]
  - Post-traumatic headache [Unknown]
  - Off label use [Unknown]
